FAERS Safety Report 5449717-0 (Version None)
Quarter: 2007Q3

REPORT INFORMATION
  Report Type: 
  Country: None (occurrence: None)
  Receive Date: 20070910
  Receipt Date: 20070903
  Transmission Date: 20080115
  Serious: Yes (Hospitalization)
  Sender: FDA-Public Use
  Company Number: 2007AL003675

PATIENT
  Age: 69 Year
  Sex: Female

DRUGS (1)
  1. TRAMADOL HYDROCHLORIDE [Suspect]
     Indication: PAIN
     Dosage: 50 MG, QD; PO
     Route: 048
     Dates: start: 20070803, end: 20070803

REACTIONS (4)
  - DIZZINESS [None]
  - NAUSEA [None]
  - VOMITING [None]
  - WHEEZING [None]
